FAERS Safety Report 6770727-5 (Version None)
Quarter: 2010Q2

REPORT INFORMATION
  Report Type: 
  Country: None (occurrence: None)
  Receive Date: 20100615
  Receipt Date: 20100604
  Transmission Date: 20101027
  Serious: Yes (Life-Threatening, Hospitalization, Disabling)
  Sender: FDA-Public Use
  Company Number: AU-GENENTECH-268580

PATIENT
  Sex: Male

DRUGS (5)
  1. RITUXIMAB [Suspect]
     Indication: B-CELL LYMPHOMA
     Dosage: 765 MG, 1/MONTH
     Route: 042
     Dates: start: 20060515
  2. CYCLOPHOSPHAMIDE [Suspect]
     Indication: B-CELL LYMPHOMA
     Dosage: 750 MG/M2, Q21D
     Route: 042
     Dates: start: 20060217
  3. DOXORUBICIN HCL [Suspect]
     Indication: B-CELL LYMPHOMA
     Dosage: 50 MG, Q21D
     Route: 042
     Dates: start: 20060217
  4. PREDNISONE [Suspect]
     Indication: B-CELL LYMPHOMA
     Dosage: 100 MG, QDX5D/21DC
     Route: 048
     Dates: start: 20060217
  5. VINCRISTINE [Suspect]
     Indication: B-CELL LYMPHOMA
     Dosage: 1.4 MG/M2, Q21D
     Route: 042
     Dates: start: 20060217

REACTIONS (1)
  - SUBARACHNOID HAEMORRHAGE [None]
